FAERS Safety Report 22763017 (Version 4)
Quarter: 2024Q1

REPORT INFORMATION
  Report Type: Spontaneous
  Country: PT (occurrence: PT)
  Receive Date: 20230729
  Receipt Date: 20240118
  Transmission Date: 20240409
  Serious: Yes (Life-Threatening, Hospitalization, Other)
  Sender: FDA-Public Use
  Company Number: PT-AGUETTANT-2023000384

PATIENT
  Age: 53 Year
  Sex: Female
  Weight: 37 kg

DRUGS (3)
  1. ASPERCREME LIDOCAINE WITH EUCALYPTUS ESSENTIAL OIL [Suspect]
     Active Substance: LIDOCAINE HYDROCHLORIDE
     Indication: Local anaesthesia
     Dosage: 600 MG, TOTAL (3 LIDOCAINE 20 ML AMPOULES, TOTAL DOSE OF 60 ML OF LIDOCAINE AT 1%)
     Route: 058
  2. ASPERCREME LIDOCAINE WITH EUCALYPTUS ESSENTIAL OIL [Suspect]
     Active Substance: LIDOCAINE HYDROCHLORIDE
     Dosage: 200 MG, TOTAL 20 ML OF LIDOCAINE 1% (TOTAL 200 MG)
     Route: 058
  3. MIDAZOLAM [Concomitant]
     Active Substance: MIDAZOLAM
     Indication: Premedication
     Dosage: 2 MG
     Route: 065

REACTIONS (4)
  - Local anaesthetic systemic toxicity [Recovering/Resolving]
  - Overdose [Recovering/Resolving]
  - Bradypnoea [Recovering/Resolving]
  - Unresponsive to stimuli [Recovering/Resolving]
